FAERS Safety Report 24443743 (Version 2)
Quarter: 2024Q4

REPORT INFORMATION
  Report Type: Report from Study
  Country: US (occurrence: US)
  Receive Date: 20241016
  Receipt Date: 20241017
  Transmission Date: 20250114
  Serious: No
  Sender: ROCHE
  Company Number: US-ROCHE-2062398

PATIENT
  Age: 74 Year
  Sex: Female

DRUGS (2)
  1. RITUXAN [Suspect]
     Active Substance: RITUXIMAB
     Indication: Sarcoidosis
     Dosage: DATE OF TREATMENT-23-SEPT-2021, 02-SEPT-2021, 06-JAN-2022, 22/JUL/2021?DATE OF SERVICE: 28/JUN/2018,
     Route: 041
     Dates: start: 20160101
  2. RITUXAN [Suspect]
     Active Substance: RITUXIMAB
     Indication: Pulmonary sarcoidosis
     Dosage: DATE OF SERVICE: 19/JUL/2022, 14/SEP/2023
     Route: 041

REACTIONS (2)
  - Off label use [Unknown]
  - Skin ulcer [Recovered/Resolved]
